FAERS Safety Report 7842132-1 (Version None)
Quarter: 2011Q4

REPORT INFORMATION
  Report Type: 
  Country: None (occurrence: None)
  Receive Date: 20111024
  Receipt Date: 20111024
  Transmission Date: 20120403
  Serious: Yes (Other)
  Sender: FDA-Public Use
  Company Number: None

PATIENT
  Sex: Female
  Weight: 113.3993 kg

DRUGS (1)
  1. FLUTICASONE PROPIONATE [Suspect]
     Indication: RHINITIS ALLERGIC
     Dosage: 2 SPRAYS 2X PER DAY
     Dates: start: 19900101, end: 20110101

REACTIONS (2)
  - NASAL SEPTUM ULCERATION [None]
  - IMPAIRED HEALING [None]
